FAERS Safety Report 4296327-7 (Version None)
Quarter: 2004Q1

REPORT INFORMATION
  Report Type: 
  Country: None (occurrence: None)
  Receive Date: 20040212
  Receipt Date: 20040202
  Transmission Date: 20041129
  Serious: Yes (Hospitalization)
  Sender: FDA-Public Use
  Company Number: HQWYE495821JAN04

PATIENT
  Age: 20 Year
  Sex: Female

DRUGS (2)
  1. LOVETTE, CONTROL FOR 0.09 MG LEVONORGESTREL/0.02 MG ETHINYL ESTRADIOL [Suspect]
     Indication: ORAL CONTRACEPTION
     Dosage: 1 TABLET 1 X PER 1 DAY
     Route: 048
     Dates: start: 20030818, end: 20031224
  2. SERAX [Suspect]
     Indication: DEPRESSION
     Dosage: 1 TABLET DAILY
     Route: 048
     Dates: start: 20031218, end: 20031224

REACTIONS (3)
  - DEPRESSION [None]
  - INTENTIONAL OVERDOSE [None]
  - SUICIDE ATTEMPT [None]
